FAERS Safety Report 4385772-7 (Version None)
Quarter: 2004Q2

REPORT INFORMATION
  Report Type: 
  Country: None (occurrence: None)
  Receive Date: 20040628
  Receipt Date: 20040623
  Transmission Date: 20050107
  Serious: Yes (Hospitalization)
  Sender: FDA-Public Use
  Company Number: CA-MERCK-0406CAN00130

PATIENT
  Age: 41 Year
  Sex: Female

DRUGS (2)
  1. MORPHINE SULFATE [Concomitant]
     Route: 065
  2. VIOXX [Suspect]
     Indication: RHEUMATOID ARTHRITIS
     Route: 048

REACTIONS (1)
  - DEEP VEIN THROMBOSIS [None]
